FAERS Safety Report 10877651 (Version 1)
Quarter: 2015Q1

REPORT INFORMATION
  Report Type: Spontaneous
  Country: RU (occurrence: RU)
  Receive Date: 20150302
  Receipt Date: 20150302
  Transmission Date: 20150721
  Serious: Yes (Other)
  Sender: FDA-Public Use
  Company Number: RU-BAYER-2015-027721

PATIENT
  Age: 19 Year
  Sex: Female

DRUGS (1)
  1. YARINA [Suspect]
     Active Substance: DROSPIRENONE\ETHINYL ESTRADIOL
     Dosage: UNK
     Route: 048

REACTIONS (5)
  - Respiratory tract infection viral [None]
  - Abdominal pain upper [None]
  - Drug dose omission [None]
  - Abdominal pain [None]
  - Diarrhoea [None]
